FAERS Safety Report 21233344 (Version 1)
Quarter: 2022Q3

REPORT INFORMATION
  Report Type: Spontaneous
  Country: CN (occurrence: None)
  Receive Date: 20220819
  Receipt Date: 20220819
  Transmission Date: 20221027
  Serious: Yes (Other)
  Sender: FDA-Public Use
  Company Number: 2022A285746

PATIENT
  Age: 52 Year
  Sex: Male

DRUGS (7)
  1. TICAGRELOR [Suspect]
     Active Substance: TICAGRELOR
     Indication: Myocardial infarction
     Dosage: 180 MG, PO, QD
     Route: 048
  2. TICAGRELOR [Suspect]
     Active Substance: TICAGRELOR
     Indication: Antiplatelet therapy
     Dosage: 180 MG, PO, QD
     Route: 048
  3. CLOPIDOGREL BISULFATE [Suspect]
     Active Substance: CLOPIDOGREL BISULFATE
     Dosage: TABLETS (75 MG, PO, QD)
     Route: 048
  4. ASPIRIN [Concomitant]
     Active Substance: ASPIRIN
     Dosage: ENTERIC-COATED TABLETS 300 MG, PO, QD
     Route: 065
  5. ATORVASTATIN [Concomitant]
     Active Substance: ATORVASTATIN
     Dosage: CALCIUM TABLETS (20 MG, PO, QD)
     Route: 065
  6. LINEZOLID [Concomitant]
     Active Substance: LINEZOLID
     Dosage: INJECTION 600 MG, IVT, Q12H
     Route: 065
  7. METOPROLOL TARTRATE [Concomitant]
     Active Substance: METOPROLOL TARTRATE
     Indication: Myocardial ischaemia
     Dosage: (12.5 MG, PO, QD)
     Route: 065

REACTIONS (1)
  - Thrombocytopenia [Unknown]
